FAERS Safety Report 8160118 (Version 2)
Quarter: 2013Q2

REPORT INFORMATION
  Report Type: Spontaneous
  Country: US (occurrence: US)
  Receive Date: 20110928
  Receipt Date: 20130417
  Transmission Date: 20140414
  Serious: Yes (Hospitalization)
  Sender: FDA-Public Use
  Company Number: US-GLAXOSMITHKLINE-A0877043A

PATIENT
  Age: 70 Year
  Sex: Male
  Weight: 60 kg

DRUGS (21)
  1. AVANDIA [Suspect]
     Indication: DIABETES MELLITUS
     Dosage: 2MG PER DAY
     Route: 048
     Dates: start: 200508, end: 200611
  2. WELLBUTRIN [Concomitant]
  3. NEURONTIN [Concomitant]
  4. GLUCOTROL [Concomitant]
  5. ZOCOR [Concomitant]
  6. LISINOPRIL [Concomitant]
  7. AMBIEN [Concomitant]
  8. GLIPIZIDE [Concomitant]
  9. SPIRONOLACTONE [Concomitant]
  10. DIGOXIN [Concomitant]
  11. LASIX [Concomitant]
  12. COZAAR [Concomitant]
  13. ASPIRIN [Concomitant]
  14. NOVOLIN [Concomitant]
  15. LANTUS [Concomitant]
  16. COREG [Concomitant]
  17. NOVOLOG [Concomitant]
  18. INSPRA [Concomitant]
  19. FUROSEMIDE [Concomitant]
  20. WARFARIN [Concomitant]
  21. EPLERENONE [Concomitant]

REACTIONS (8)
  - Cardiac arrest [Not Recovered/Not Resolved]
  - Myocardial infarction [Unknown]
  - Ischaemic cardiomyopathy [Unknown]
  - Pleural effusion [Unknown]
  - Cerebrovascular accident [Unknown]
  - Coronary artery disease [Unknown]
  - Cardiac failure congestive [Unknown]
  - Abasia [Unknown]
